FAERS Safety Report 17164306 (Version 7)
Quarter: 2022Q1

REPORT INFORMATION
  Report Type: Spontaneous
  Country: US (occurrence: US)
  Receive Date: 20191217
  Receipt Date: 20220316
  Transmission Date: 20220423
  Serious: Yes (Other)
  Sender: FDA-Public Use
  Company Number: US-PFIZER INC-2019543188

PATIENT
  Age: 71 Year
  Sex: Female
  Weight: 72.562 kg

DRUGS (7)
  1. XELJANZ XR [Suspect]
     Active Substance: TOFACITINIB CITRATE
     Indication: Rheumatoid arthritis
     Dosage: 11 MG, DAILY
     Dates: start: 2017
  2. METOPROLOL TARTRATE [Concomitant]
     Active Substance: METOPROLOL TARTRATE
     Indication: Atrial fibrillation
     Dosage: 25 MG, 2X/DAY
     Dates: start: 2015
  3. NAPROXEN [Concomitant]
     Active Substance: NAPROXEN
     Indication: Rheumatoid arthritis
     Dosage: UNK, DAILY (500 MG, 1 OR 2 A DAY)
     Dates: start: 2016
  4. NAPROXEN [Concomitant]
     Active Substance: NAPROXEN
     Dosage: UNK, DAILY (500 MG, 1 A DAY OR LESS)
  5. LEFLUNOMIDE [Concomitant]
     Active Substance: LEFLUNOMIDE
     Indication: Rheumatoid arthritis
     Dosage: 20 MG, DAILY
  6. LEVOTHYROXINE [Concomitant]
     Active Substance: LEVOTHYROXINE
     Dosage: 125 UG, 1X/DAY
  7. ACYCLOVIR [Concomitant]
     Active Substance: ACYCLOVIR
     Dosage: 200 MG, 1X/DAY

REACTIONS (3)
  - Cataract [Recovered/Resolved]
  - Condition aggravated [Unknown]
  - Dysphonia [Unknown]
